FAERS Safety Report 9848405 (Version 1)
Quarter: 2013Q4

REPORT INFORMATION
  Report Type: Spontaneous
  Country: US (occurrence: None)
  Receive Date: 20131224
  Receipt Date: 20131224
  Transmission Date: 20140711
  Serious: Yes (Other)
  Sender: FDA-Public Use
  Company Number: PHEH2013US020036

PATIENT
  Age: 52 Year
  Sex: Female
  Weight: 94 kg

DRUGS (14)
  1. MYFORTIC (MYCOPHENOLIC ACID) TABLET [Suspect]
     Indication: SYSTEMIC LUPUS ERYTHEMATOSUS
     Route: 048
     Dates: start: 2011, end: 20130129
  2. MYFORTIC (MYCOPHENOLIC ACID) TABLET [Suspect]
     Route: 048
     Dates: start: 2011, end: 20130129
  3. BENLYSTA [Suspect]
     Route: 048
  4. CYMBALTA (DULOXETINE HYDROCHLORIDE) [Concomitant]
  5. HYDROCHLOROTHIAZIDE (HYDROCHLOROTHIAZIDE) [Concomitant]
  6. TRAMADOL (TRAMADOL) [Concomitant]
  7. RELPAX (ELETRIPTAN HYDROBROMIDE) [Concomitant]
  8. LORAZEPAM (LORAZEPAM) [Concomitant]
  9. ATORVASTATIN (ATORVASTATIN) [Concomitant]
  10. LANZOPRAZOL (LANSOPRAZOLE) [Concomitant]
  11. LYRICA (PREGABALIN) [Concomitant]
  12. ATENOLOL (ATENOLOL) [Concomitant]
  13. PLAQUENIL (HYDROXYCHLOROQUINE SULFATE)? [Concomitant]
  14. PRILOSEC (OMEPRAZOLE) [Concomitant]

REACTIONS (4)
  - Superinfection [None]
  - Pseudomonas infection [None]
  - Malaise [None]
  - Sinusitis [None]
